FAERS Safety Report 6995879-3 (Version None)
Quarter: 2010Q3

REPORT INFORMATION
  Report Type: 
  Country: None (occurrence: None)
  Receive Date: 20100918
  Receipt Date: 20081028
  Transmission Date: 20110219
  Serious: No
  Sender: FDA-Public Use
  Company Number: US-WYE-H06611608

PATIENT
  Sex: Female
  Weight: 56.75 kg

DRUGS (5)
  1. EFFEXOR XR [Suspect]
     Indication: DEPRESSION
     Route: 048
     Dates: start: 20000101
  2. BUSPAR [Concomitant]
  3. METFORMIN [Concomitant]
  4. NEXIUM [Concomitant]
  5. LOMOTIL [Concomitant]

REACTIONS (1)
  - DENTAL CARIES [None]
